FAERS Safety Report 8036648-5 (Version None)
Quarter: 2011Q4

REPORT INFORMATION
  Report Type: 
  Country: None (occurrence: None)
  Receive Date: 20111202
  Receipt Date: 20110906
  Transmission Date: 20120403
  Serious: Yes (Other)
  Sender: FDA-Public Use
  Company Number: PHEH2011US03467

PATIENT
  Age: 51 Year
  Sex: Female

DRUGS (1)
  1. FANAPT [Suspect]
     Dosage: 4 , BID, ORAL
     Route: 048

REACTIONS (1)
  - TACHYCARDIA [None]
